FAERS Safety Report 9002116 (Version 1)
Quarter: 2013Q1

REPORT INFORMATION
  Report Type: Spontaneous
  Country: US (occurrence: US)
  Receive Date: 20130107
  Receipt Date: 20130107
  Transmission Date: 20140127
  Serious: Yes (Hospitalization)
  Sender: FDA-Public Use
  Company Number: US-009507513-1301USA001981

PATIENT
  Age: 23 Year
  Sex: Female

DRUGS (5)
  1. SINGULAIR [Suspect]
     Indication: ASTHMA
     Route: 048
  2. SINGULAIR [Suspect]
     Indication: BRONCHITIS
  3. SINGULAIR [Suspect]
     Indication: ORAL CANDIDIASIS
  4. SINGULAIR [Suspect]
     Indication: PYREXIA
  5. SALICYLAMIDE [Concomitant]

REACTIONS (5)
  - Oral pain [Unknown]
  - Oral discomfort [Unknown]
  - Oral candidiasis [Unknown]
  - Rash [Unknown]
  - Bronchitis [Unknown]
